FAERS Safety Report 11659361 (Version 1)
Quarter: 2015Q4

REPORT INFORMATION
  Report Type: Spontaneous
  Country: JP (occurrence: JP)
  Receive Date: 20151026
  Receipt Date: 20151026
  Transmission Date: 20160304
  Serious: Yes (Hospitalization)
  Sender: FDA-Public Use
  Company Number: JP-SA-2015SA164923

PATIENT
  Age: 65 Year
  Sex: Male

DRUGS (1)
  1. BCG FOR IMMUNOTHERAPY [Suspect]
     Active Substance: BACILLUS CALMETTE-GUERIN ANTIGEN, UNSPECIFIED SUBSTRAIN
     Indication: BLADDER CANCER
     Route: 062

REACTIONS (6)
  - Burning sensation [Unknown]
  - Dysuria [Unknown]
  - Feeling abnormal [Unknown]
  - Bladder irritation [Unknown]
  - Allodynia [Unknown]
  - Perineal pain [Unknown]
